FAERS Safety Report 6155726-9 (Version None)
Quarter: 2009Q2

REPORT INFORMATION
  Report Type: 
  Country: None (occurrence: None)
  Receive Date: 20090415
  Receipt Date: 20090407
  Transmission Date: 20091009
  Serious: Yes (Hospitalization)
  Sender: FDA-Public Use
  Company Number: B0568906A

PATIENT
  Sex: Female

DRUGS (11)
  1. CLAMOXYL [Suspect]
     Dosage: 1G THREE TIMES PER DAY
     Route: 048
     Dates: start: 20090116, end: 20090121
  2. RAMIPRIL [Concomitant]
  3. HYDROCORTISONE [Concomitant]
  4. CORDARONE [Concomitant]
  5. OGAST [Concomitant]
  6. IMOVANE [Concomitant]
  7. SOLMUCOL [Concomitant]
  8. LEVOTHYROXINE SODIUM [Concomitant]
  9. SEROPRAM [Concomitant]
  10. PLASMA-LYTE 56 AND DEXTROSE 5% IN PLASTIC CONTAINER [Concomitant]
  11. PARACETAMOL [Concomitant]

REACTIONS (9)
  - ABDOMINAL DISTENSION [None]
  - BLISTER [None]
  - C-REACTIVE PROTEIN INCREASED [None]
  - HYPOALBUMINAEMIA [None]
  - PITTING OEDEMA [None]
  - PYREXIA [None]
  - RASH ERYTHEMATOUS [None]
  - SKIN OEDEMA [None]
  - TONGUE DRY [None]
